FAERS Safety Report 8402044-1 (Version None)
Quarter: 2012Q2

REPORT INFORMATION
  Report Type: 
  Country: None (occurrence: None)
  Receive Date: 20120601
  Receipt Date: 20120524
  Transmission Date: 20120825
  Serious: Yes (Other)
  Sender: FDA-Public Use
  Company Number: US-US-EMD SERONO, INC.-7135914

PATIENT
  Sex: Female

DRUGS (5)
  1. ZOLOFT [Concomitant]
     Indication: DEPRESSION
  2. VITAMIN D [Concomitant]
     Indication: PRODUCT USED FOR UNKNOWN INDICATION
  3. REBIF [Suspect]
     Indication: PRODUCT USED FOR UNKNOWN INDICATION
     Route: 058
     Dates: start: 20100904, end: 20111018
  4. IBUPROFEN [Concomitant]
     Indication: PREMEDICATION
  5. REBIF [Suspect]
     Route: 058
     Dates: start: 20120429

REACTIONS (4)
  - NEPHROLITHIASIS [None]
  - CONVULSION [None]
  - HAEMATOCHEZIA [None]
  - RENAL DISORDER [None]
